FAERS Safety Report 8151701-3 (Version None)
Quarter: 2012Q1

REPORT INFORMATION
  Report Type: 
  Country: None (occurrence: None)
  Receive Date: 20120221
  Receipt Date: 20120209
  Transmission Date: 20120608
  Serious: Yes (Death)
  Sender: FDA-Public Use
  Company Number: AR-AMGEN-ARGCT2010004328

PATIENT
  Age: 52 Year
  Sex: Female

DRUGS (2)
  1. ENBREL [Suspect]
     Indication: RHEUMATOID ARTHRITIS
     Dosage: 50 MG, QWK
     Route: 058
     Dates: start: 20081101, end: 20100901
  2. DICLOFENAC [Concomitant]
     Dosage: UNK
     Route: 048
     Dates: start: 20050101

REACTIONS (2)
  - CARDIOMEGALY [None]
  - CARDIAC ARREST [None]
